FAERS Safety Report 12744033 (Version 1)
Quarter: 2016Q3

REPORT INFORMATION
  Report Type: Spontaneous
  Country: US (occurrence: US)
  Receive Date: 20160914
  Receipt Date: 20160914
  Transmission Date: 20161109
  Serious: Yes (Other)
  Sender: FDA-Public Use
  Company Number: US-TEVA-692106USA

PATIENT
  Sex: Female

DRUGS (7)
  1. TAXOTERE [Suspect]
     Active Substance: DOCETAXEL
     Route: 065
  2. ANASTROZOLE. [Suspect]
     Active Substance: ANASTROZOLE
     Route: 065
  3. ARIMIDEX [Suspect]
     Active Substance: ANASTROZOLE
     Route: 065
  4. FASLODEX [Suspect]
     Active Substance: FULVESTRANT
     Indication: BREAST CANCER METASTATIC
     Dosage: 500 MILLIGRAM DAILY; 2 250MG INJECTIONS EVERY 28 DAYS
     Route: 030
     Dates: start: 201603, end: 20160701
  5. CYTOXAN [Suspect]
     Active Substance: CYCLOPHOSPHAMIDE
     Route: 065
  6. IBRANCE [Suspect]
     Active Substance: PALBOCICLIB
     Indication: BREAST CANCER METASTATIC
     Dosage: 21 DAYS OF 28 DAY CYCLE
     Route: 048
     Dates: start: 201603, end: 201607
  7. ANASTROZOLE. [Suspect]
     Active Substance: ANASTROZOLE
     Route: 065

REACTIONS (20)
  - Pulmonary mass [Unknown]
  - Anaemia vitamin B12 deficiency [Unknown]
  - Urinary incontinence [Unknown]
  - Amnesia [Unknown]
  - Muscular weakness [Unknown]
  - Asthenia [Unknown]
  - Post procedural hypothyroidism [Unknown]
  - Type 2 diabetes mellitus [Unknown]
  - Hiatus hernia [Unknown]
  - Paraesthesia [Unknown]
  - Dysuria [Unknown]
  - Hypoaesthesia [Unknown]
  - Musculoskeletal stiffness [Unknown]
  - Essential hypertension [Unknown]
  - Febrile neutropenia [Unknown]
  - Recurrent cancer [Unknown]
  - Folate deficiency [Unknown]
  - Pollakiuria [Unknown]
  - Pain in extremity [Unknown]
  - Chest pain [Unknown]
